FAERS Safety Report 12441998 (Version 1)
Quarter: 2016Q2

REPORT INFORMATION
  Report Type: Spontaneous
  Country: US (occurrence: US)
  Receive Date: 20160607
  Receipt Date: 20160607
  Transmission Date: 20160815
  Serious: No
  Sender: FDA-Public Use
  Company Number: US-WATSON-2015-22229

PATIENT
  Sex: Female

DRUGS (1)
  1. AMETHIA [Suspect]
     Active Substance: ETHINYL ESTRADIOL\LEVONORGESTREL
     Indication: ORAL CONTRACEPTION
     Dosage: UNKNOWN
     Route: 048

REACTIONS (6)
  - Constipation [Unknown]
  - Nausea [Unknown]
  - Abdominal distension [Unknown]
  - Vomiting [Unknown]
  - Abdominal pain [Unknown]
  - Menstruation irregular [Unknown]
